FAERS Safety Report 8030534-2 (Version None)
Quarter: 2012Q1

REPORT INFORMATION
  Report Type: 
  Country: None (occurrence: None)
  Receive Date: 20120109
  Receipt Date: 20111229
  Transmission Date: 20120608
  Serious: Yes (Hospitalization, Other)
  Sender: FDA-Public Use
  Company Number: US-CELGENEUS-163-21880-11123873

PATIENT
  Sex: Female

DRUGS (1)
  1. REVLIMID [Suspect]
     Indication: MULTIPLE MYELOMA
     Dosage: 10 MILLIGRAM
     Route: 048
     Dates: start: 20080421

REACTIONS (8)
  - DEEP VEIN THROMBOSIS [None]
  - OEDEMA PERIPHERAL [None]
  - DIVERTICULITIS [None]
  - DRUG INEFFECTIVE [None]
  - CARDIAC DISORDER [None]
  - HYPOTENSION [None]
  - LUNG NEOPLASM MALIGNANT [None]
  - ASTHENIA [None]
